FAERS Safety Report 13645960 (Version 1)
Quarter: 2017Q2

REPORT INFORMATION
  Report Type: Spontaneous
  Country: US (occurrence: US)
  Receive Date: 20170612
  Receipt Date: 20170612
  Transmission Date: 20170830
  Serious: No
  Sender: FDA-Public Use
  Company Number: None

PATIENT
  Age: 26 Year
  Sex: Female

DRUGS (1)
  1. RIBAVIRIN CAP 200MG [Suspect]
     Active Substance: RIBAVIRIN
     Dosage: FREQUENCY - BID - 3QAM 2 QPM
     Route: 048

REACTIONS (2)
  - Fatigue [None]
  - Alopecia [None]

NARRATIVE: CASE EVENT DATE: 20170612
